FAERS Safety Report 5758393-9 (Version None)
Quarter: 2008Q2

REPORT INFORMATION
  Report Type: 
  Country: None (occurrence: None)
  Receive Date: 20080604
  Receipt Date: 20080529
  Transmission Date: 20081010
  Serious: Yes (Hospitalization)
  Sender: FDA-Public Use
  Company Number: GB-ALLERGAN-0803511US

PATIENT
  Sex: Male

DRUGS (11)
  1. PREDNISOLONE ACETATE [Suspect]
     Indication: DRUG USE FOR UNKNOWN INDICATION
  2. ASPIRIN [Suspect]
     Indication: DRUG USE FOR UNKNOWN INDICATION
  3. AQUEOUS CREAM [Suspect]
     Indication: DRUG USE FOR UNKNOWN INDICATION
  4. ATENOLOL [Suspect]
     Indication: DRUG USE FOR UNKNOWN INDICATION
  5. BENDROFLUMETHIAZIDE [Suspect]
     Indication: DRUG USE FOR UNKNOWN INDICATION
  6. CHLORPHENIRAMINE MALEATE [Suspect]
     Indication: DRUG USE FOR UNKNOWN INDICATION
  7. DIGOXIN [Suspect]
     Indication: DRUG USE FOR UNKNOWN INDICATION
  8. URSODIOL [Suspect]
     Indication: DRUG USE FOR UNKNOWN INDICATION
  9. AQUEOUS CREAM WITH MENTHOL [Suspect]
     Indication: DRUG USE FOR UNKNOWN INDICATION
  10. CETOSTEARYL ALCOHOL [Suspect]
     Indication: DRUG USE FOR UNKNOWN INDICATION
  11. LACTULOSE [Concomitant]
     Indication: DRUG USE FOR UNKNOWN INDICATION
     Dosage: 10 ML, BID
     Route: 048

REACTIONS (1)
  - JAUNDICE [None]
